FAERS Safety Report 7392662-4 (Version None)
Quarter: 2011Q1

REPORT INFORMATION
  Report Type: 
  Country: None (occurrence: None)
  Receive Date: 20110330
  Receipt Date: 20110330
  Transmission Date: 20110831
  Serious: Yes (Hospitalization)
  Sender: FDA-Public Use
  Company Number: None

PATIENT
  Age: 81 Year
  Sex: Male
  Weight: 75.3 kg

DRUGS (2)
  1. DABIGATRAN [Suspect]
     Indication: ATRIAL FIBRILLATION
     Dosage: 150 MG BID PO
     Route: 048
     Dates: start: 20110120, end: 20110318
  2. DABIGATRAN [Suspect]
     Indication: MITRAL VALVE INCOMPETENCE
     Dosage: 150 MG BID PO
     Route: 048
     Dates: start: 20110120, end: 20110318

REACTIONS (1)
  - RECTAL HAEMORRHAGE [None]
